FAERS Safety Report 4633151-7 (Version None)
Quarter: 2005Q2

REPORT INFORMATION
  Report Type: 
  Country: None (occurrence: None)
  Receive Date: 20050411
  Receipt Date: 20050411
  Transmission Date: 20051028
  Serious: Yes (Other)
  Sender: FDA-Public Use
  Company Number: None

PATIENT
  Age: 83 Year
  Sex: Female
  Weight: 58 kg

DRUGS (2)
  1. DEXFERRUM [Suspect]
     Indication: IRON DEFICIENCY ANAEMIA
     Dosage: 200 MG DAILY X 2 DAYS INTRAVENOUS
     Route: 042
     Dates: start: 20050216, end: 20050217
  2. VITAMIN B-12 [Suspect]
     Indication: ANAEMIA VITAMIN B12 DEFICIENCY
     Dosage: 1000 MCG ONCE INTRAMUSCULAR
     Route: 030
     Dates: start: 20050216, end: 20050216

REACTIONS (11)
  - ANGIONEUROTIC OEDEMA [None]
  - BETA HAEMOLYTIC STREPTOCOCCAL INFECTION [None]
  - BLOOD GLUCOSE FLUCTUATION [None]
  - CULTURE WOUND POSITIVE [None]
  - DEPRESSION [None]
  - ORAL INTAKE REDUCED [None]
  - PAIN [None]
  - POSTOPERATIVE WOUND COMPLICATION [None]
  - RASH ERYTHEMATOUS [None]
  - STAPHYLOCOCCAL INFECTION [None]
  - WHITE BLOOD CELL COUNT INCREASED [None]
